FAERS Safety Report 13889115 (Version 1)
Quarter: 2017Q3

REPORT INFORMATION
  Report Type: Spontaneous
  Country: US (occurrence: None)
  Receive Date: 20170816
  Receipt Date: 20170816
  Transmission Date: 20171127
  Serious: Yes (Other)
  Sender: FDA-Public Use
  Company Number: None

PATIENT
  Age: 63 Year
  Sex: Male

DRUGS (1)
  1. TASIGNA [Suspect]
     Active Substance: NILOTINIB
     Indication: CHRONIC MYELOID LEUKAEMIA
     Dosage: 2 CAPSULES (300MG) DAILY BY MOUTH?29-JUNE-2017/ 15-MAY-2017
     Route: 048
     Dates: start: 20170629

REACTIONS (5)
  - Muscular weakness [None]
  - Pancreatitis [None]
  - Dyskinesia [None]
  - Arthropathy [None]
  - Fatigue [None]
